FAERS Safety Report 24105560 (Version 4)
Quarter: 2025Q1

REPORT INFORMATION
  Report Type: Spontaneous
  Country: US (occurrence: US)
  Receive Date: 20240717
  Receipt Date: 20250127
  Transmission Date: 20250409
  Serious: No
  Sender: SANOFI AVENTIS
  Company Number: US-SA-SAC20240711001132

PATIENT
  Age: 48 Year
  Sex: Female

DRUGS (3)
  1. DUPIXENT [Suspect]
     Active Substance: DUPILUMAB
     Indication: Eosinophilic oesophagitis
     Dosage: 300 MG, QOW
     Route: 058
  2. DUPIXENT [Suspect]
     Active Substance: DUPILUMAB
     Dosage: 300 MG, QW
     Route: 058
  3. DEXAMETHASONE [Suspect]
     Active Substance: DEXAMETHASONE
     Indication: Oral discomfort

REACTIONS (9)
  - Dysphagia [Recovering/Resolving]
  - Odynophagia [Recovering/Resolving]
  - Somnolence [Unknown]
  - Pharyngeal swelling [Unknown]
  - Oral candidiasis [Unknown]
  - Swollen tongue [Unknown]
  - Oral discomfort [Unknown]
  - Injection site pain [Unknown]
  - Injection site swelling [Unknown]
